FAERS Safety Report 8999439 (Version 1)
Quarter: 2013Q1

REPORT INFORMATION
  Report Type: Spontaneous
  Country: US (occurrence: US)
  Receive Date: 20130103
  Receipt Date: 20130103
  Transmission Date: 20140127
  Serious: No
  Sender: FDA-Public Use
  Company Number: US-009507513-1212USA009370

PATIENT
  Age: 77 Year
  Sex: Male

DRUGS (1)
  1. SYLATRON [Suspect]
     Indication: MALIGNANT MELANOMA
     Route: 058

REACTIONS (3)
  - Fatigue [Unknown]
  - Decreased appetite [Unknown]
  - Asthenia [Unknown]
